FAERS Safety Report 7917013-5 (Version None)
Quarter: 2011Q4

REPORT INFORMATION
  Report Type: 
  Country: None (occurrence: None)
  Receive Date: 20111114
  Receipt Date: 20111102
  Transmission Date: 20120403
  Serious: Yes (Other)
  Sender: FDA-Public Use
  Company Number: 2011-01208

PATIENT
  Age: 65 Year
  Sex: Female
  Weight: 68.07 kg

DRUGS (8)
  1. LOSARTAN [Concomitant]
  2. ASPIRIN [Concomitant]
  3. BENDROFLUAZIDE (BENDROFLUMETHIAZIDE) [Concomitant]
  4. SIMVASTATIN [Suspect]
     Indication: ILL-DEFINED DISORDER
     Dates: start: 20110628
  5. DIPYRIDAMOLE [Suspect]
  6. SIMVASTATIN [Concomitant]
  7. DICLOFENAC DIETHYLAMINE + DICLOFENAC FREE ACID + DICLOFENAC POTASSIUM [Concomitant]
  8. DOXAZOCIN [Concomitant]

REACTIONS (2)
  - MYALGIA [None]
  - FEELING ABNORMAL [None]
